FAERS Safety Report 5574452-8 (Version None)
Quarter: 2007Q4

REPORT INFORMATION
  Report Type: 
  Country: None (occurrence: None)
  Receive Date: 20071226
  Receipt Date: 20071226
  Transmission Date: 20080405
  Serious: Yes (Death)
  Sender: FDA-Public Use
  Company Number: None

PATIENT
  Age: 55 Year
  Sex: Male
  Weight: 108.8633 kg

DRUGS (17)
  1. VARENICLINE TARTRATE (AS PART OF STUDY) [Suspect]
     Indication: SMOKING CESSATION THERAPY
     Dosage: 0.5 MG/1.0 MG BID ORAL
     Route: 048
     Dates: start: 20070605, end: 20070829
  2. VARENICLINE TARTRATE (AS PART OF STUDY) [Suspect]
     Dosage: 1.0MG
  3. VARENICLINE TARTRATE (AS PART OF STUDY) [Suspect]
     Dosage: 1.0MG
  4. VARENICLINE TARTRATE (PRESCRIBED BY OWN MD) [Suspect]
     Indication: SMOKING CESSATION THERAPY
     Dosage: 1.0 MG BID ORAL
     Route: 048
     Dates: start: 20070904
  5. ASPIRIN [Concomitant]
  6. CALCIUM POLYCARBOPHIL (FIBERCON) [Concomitant]
  7. GLYBURIDE [Concomitant]
  8. IBUPROFEN [Concomitant]
  9. INSULIN NPH (NOVOLIN N INNOLET) [Concomitant]
  10. COZAAR [Concomitant]
  11. LOVASTATIN [Concomitant]
  12. METFORMIN [Concomitant]
  13. METOPROLOL TARTRATE [Concomitant]
  14. RANITIDINE HCL [Concomitant]
  15. SAW PALMETTO [Concomitant]
  16. TRIAMTERENE AND HYDROCHLOROTHIAZIDE [Concomitant]
  17. ASCORBIC ACID [Concomitant]

REACTIONS (2)
  - ACUTE MYOCARDIAL INFARCTION [None]
  - LOSS OF CONSCIOUSNESS [None]
